FAERS Safety Report 5056313-6 (Version None)
Quarter: 2006Q3

REPORT INFORMATION
  Report Type: 
  Country: None (occurrence: None)
  Receive Date: 20060717
  Receipt Date: 20060706
  Transmission Date: 20061208
  Serious: Yes (Hospitalization)
  Sender: FDA-Public Use
  Company Number: MEDI-0004741

PATIENT
  Age: 10 Month

DRUGS (5)
  1. SYNAGIS [Suspect]
     Indication: ANTIVIRAL PROPHYLAXIS
     Dosage: 100 MG, 1 IN 1 M, INTRAMUSCULAR; SEE IMAGE
     Route: 030
     Dates: start: 20051025, end: 20060221
  2. SYNAGIS [Suspect]
     Indication: ANTIVIRAL PROPHYLAXIS
     Dosage: 100 MG, 1 IN 1 M, INTRAMUSCULAR; SEE IMAGE
     Route: 030
     Dates: start: 20050124
  3. SYNAGIS [Suspect]
     Indication: ANTIVIRAL PROPHYLAXIS
     Dosage: 100 MG, 1 IN 1 M, INTRAMUSCULAR; SEE IMAGE
     Route: 030
     Dates: start: 20051025
  4. SYNAGIS [Suspect]
     Indication: ANTIVIRAL PROPHYLAXIS
     Dosage: 100 MG, 1 IN 1 M, INTRAMUSCULAR; SEE IMAGE
     Route: 030
     Dates: start: 20051129
  5. SYNAGIS [Suspect]
     Indication: ANTIVIRAL PROPHYLAXIS
     Dosage: 100 MG, 1 IN 1 M, INTRAMUSCULAR; SEE IMAGE
     Route: 030
     Dates: start: 20051220

REACTIONS (1)
  - BRONCHIOLITIS [None]
